FAERS Safety Report 7222062-9 (Version None)
Quarter: 2011Q1

REPORT INFORMATION
  Report Type: 
  Country: None (occurrence: None)
  Receive Date: 20110112
  Receipt Date: 20110104
  Transmission Date: 20110831
  Serious: Yes (Other)
  Sender: FDA-Public Use
  Company Number: US-JNJFOC-20100804442

PATIENT
  Age: 2 Year
  Sex: Male

DRUGS (1)
  1. REMICADE [Suspect]
     Indication: DRUG EXPOSURE DURING PREGNANCY
     Route: 064

REACTIONS (5)
  - DYSARTHRIA [None]
  - PYREXIA [None]
  - SYNOVITIS [None]
  - SPEECH DISORDER DEVELOPMENTAL [None]
  - HYDRONEPHROSIS [None]
